FAERS Safety Report 7647750-1 (Version None)
Quarter: 2011Q3

REPORT INFORMATION
  Report Type: 
  Country: None (occurrence: None)
  Receive Date: 20110726
  Receipt Date: 20110715
  Transmission Date: 20111222
  Serious: Yes (Hospitalization, Other)
  Sender: FDA-Public Use
  Company Number: 2009JP007452

PATIENT
  Age: 77 Year
  Sex: Male

DRUGS (5)
  1. PROGRAF [Suspect]
     Indication: JUVENILE ARTHRITIS
     Dosage: 2 MG,/D; 1.5MG, /D; 3 MG /D,
  2. PREDNISOLONE [Concomitant]
  3. GANCICLOVIR [Concomitant]
  4. VALCICLOVIR HYDROCHLORIDE [Concomitant]
  5. METHYLPREDNISOLON (METHYLPREDNISOLONE SODIUM SUCCINATE) [Concomitant]

REACTIONS (8)
  - CYTOMEGALOVIRUS INFECTION [None]
  - PLATELET COUNT DECREASED [None]
  - DISEASE RECURRENCE [None]
  - SKIN ULCER [None]
  - OFF LABEL USE [None]
  - PNEUMONIA BACTERIAL [None]
  - HERPES ZOSTER [None]
  - STILL'S DISEASE ADULT ONSET [None]
